FAERS Safety Report 8531313-X (Version None)
Quarter: 2012Q3

REPORT INFORMATION
  Report Type: 
  Country: None (occurrence: None)
  Receive Date: 20120711
  Receipt Date: 20120509
  Transmission Date: 20120928
  Serious: Yes (Life-Threatening, Other)
  Sender: FDA-Public Use
  Company Number: MC201200193

PATIENT
  Age: 63 Year
  Sex: Female
  Weight: 76 kg

DRUGS (9)
  1. HEPARIN [Concomitant]
  2. ANGIOMAX [Suspect]
     Indication: PERCUTANEOUS CORONARY INTERVENTION
     Dosage: 0.75 MG/KG, BOLUS, INTRAVENOUS;
     Route: 040
     Dates: start: 20120320, end: 20120320
  3. ANGIOMAX [Suspect]
     Indication: PERCUTANEOUS CORONARY INTERVENTION
     Dosage: 0.75 MG/KG, BOLUS, INTRAVENOUS;
     Route: 040
     Dates: start: 20120321, end: 20120321
  4. ANGIOMAX [Suspect]
     Indication: PERCUTANEOUS CORONARY INTERVENTION
     Dosage: 0.75 MG/KG, BOLUS, INTRAVENOUS;
     Route: 040
     Dates: start: 20120320, end: 20120321
  5. ... [Concomitant]
     Dosage: 1.75 MG/KG, HR, INTRAVENOUS; 0.25 MG/KG, HR, INTRAVENOUS
     Route: 042
     Dates: start: 20120321, end: 20120321
  6. ... [Concomitant]
     Dosage: 1.75 MG/KG, HR, INTRAVENOUS; 0.25 MG/KG, HR, INTRAVENOUS
     Route: 042
     Dates: start: 20120320, end: 20120321
  7. TICAGRELOR [Concomitant]
  8. ASPIRIN [Concomitant]
  9. ATORVASTATIN CALCIUM [Concomitant]

REACTIONS (8)
  - MYOCARDIAL INFARCTION [None]
  - PRODUCT QUALITY ISSUE [None]
  - INCORRECT DRUG ADMINISTRATION DURATION [None]
  - VOMITING [None]
  - SHOCK [None]
  - DRUG INEFFECTIVE [None]
  - THROMBOSIS IN DEVICE [None]
  - CORONARY ARTERY STENOSIS [None]
